FAERS Safety Report 20633088 (Version 2)
Quarter: 2022Q2

REPORT INFORMATION
  Report Type: Report from Study
  Country: CZ (occurrence: CZ)
  Receive Date: 20220324
  Receipt Date: 20220407
  Transmission Date: 20220720
  Serious: Yes (Other)
  Sender: FDA-Public Use
  Company Number: CZ-TEVA-2022-CZ-2018960

PATIENT
  Age: 68 Year
  Sex: Female

DRUGS (2)
  1. ALLOPURINOL [Interacting]
     Active Substance: ALLOPURINOL
     Indication: Hyperuricaemia
     Route: 065
  2. AZATHIOPRINE [Interacting]
     Active Substance: AZATHIOPRINE
     Indication: Interstitial lung disease
     Route: 065
     Dates: start: 200909

REACTIONS (2)
  - Myelosuppression [Recovering/Resolving]
  - Drug interaction [Unknown]
